FAERS Safety Report 4954933-8 (Version None)
Quarter: 2006Q1

REPORT INFORMATION
  Report Type: 
  Country: None (occurrence: None)
  Receive Date: 20060327
  Receipt Date: 20060317
  Transmission Date: 20060701
  Serious: Yes (Life-Threatening)
  Sender: FDA-Public Use
  Company Number: DE-ABBOTT-06P-062-0328375-00

PATIENT
  Age: 38 Year
  Sex: Female

DRUGS (5)
  1. ERGENYL TABLETS [Suspect]
     Indication: SCHIZOAFFECTIVE DISORDER
     Route: 048
  2. LORAZEPAM [Suspect]
     Indication: DRUG USE FOR UNKNOWN INDICATION
     Route: 048
  3. CLOMIPRAMINE HYDROCHLORIDE [Suspect]
     Indication: DRUG USE FOR UNKNOWN INDICATION
     Route: 048
  4. FLUPHENAZINE DECANOATE [Concomitant]
     Indication: DRUG USE FOR UNKNOWN INDICATION
     Route: 030
  5. ETHANOL [Concomitant]
     Indication: DRUG USE FOR UNKNOWN INDICATION

REACTIONS (2)
  - ALCOHOL POISONING [None]
  - SUICIDE ATTEMPT [None]
